FAERS Safety Report 15713752 (Version 1)
Quarter: 2018Q4

REPORT INFORMATION
  Report Type: Report from Study
  Country: DE (occurrence: DE)
  Receive Date: 20181212
  Receipt Date: 20181212
  Transmission Date: 20190205
  Serious: Yes (Death, Congenital Anomaly, Other)
  Sender: FDA-Public Use
  Company Number: DE-BAYER-2015-390046

PATIENT
  Weight: .06 kg

DRUGS (15)
  1. XARELTO [Suspect]
     Active Substance: RIVAROXABAN
     Dosage: GESTATIONAL WEEK 0-5
     Route: 064
  2. DALTEPARIN SODIUM [Suspect]
     Active Substance: DALTEPARIN SODIUM
     Dosage: GESTATIONAL WEEK 6-14
  3. EZETIMIBE. [Suspect]
     Active Substance: EZETIMIBE
     Dosage: GESTATIONAL WEEK 0-14
     Route: 064
  4. HYDROXYCHLOROQUINE [Suspect]
     Active Substance: HYDROXYCHLOROQUINE
     Dosage: GESTATIONAL WEEK 0-14
     Route: 064
  5. SALBUTAMOL [Suspect]
     Active Substance: ALBUTEROL
     Dosage: GESTATIONAL WEEK 0-14
     Route: 064
  6. NICOTINE. [Suspect]
     Active Substance: NICOTINE
     Dosage: GESTATIONAL WEEK 0-14
  7. ALISKIREN [Suspect]
     Active Substance: ALISKIREN
     Dosage: GESTATIONAL WEEK 0-5
  8. TORASEMIDE [Suspect]
     Active Substance: TORSEMIDE
     Dosage: GESTATIONAL WEEK 0-14
     Route: 064
  9. RAMIPRIL [RAMIPRIL] [Suspect]
     Active Substance: RAMIPRIL
     Dosage: GESTATIONAL WEEK 0-13+6
     Route: 064
  10. PREDNISOLONE. [Suspect]
     Active Substance: PREDNISOLONE
     Dosage: GESTATIONAL WEEK 0-14
     Route: 064
  11. ACETYLSALICYLIC ACID({=100 MG) [Suspect]
     Active Substance: ASPIRIN
     Dosage: GESTATIONAL WEEK 0-14
     Route: 064
  12. TACROLIMUS. [Suspect]
     Active Substance: TACROLIMUS
     Dosage: GESTATIONAL WEEK 0-14
     Route: 064
  13. SIMVASTATIN. [Suspect]
     Active Substance: SIMVASTATIN
     Dosage: GESTATIONAL WEEK 0-14
     Route: 064
  14. METAMIZOLE [Suspect]
     Active Substance: METAMIZOLE
     Dosage: GESTATIONAL WEEK 0-14
  15. PANTOPRAZOLE [Suspect]
     Active Substance: PANTOPRAZOLE
     Dosage: GESTATIONAL WEEK 0-14
     Route: 064

REACTIONS (6)
  - Ventricular septal defect [Fatal]
  - Truncus arteriosus persistent [Fatal]
  - Cardiac septal defect [Fatal]
  - Heart disease congenital [Fatal]
  - Congenital cardiovascular anomaly [Fatal]
  - Foetal exposure during pregnancy [None]
